FAERS Safety Report 11401955 (Version 1)
Quarter: 2015Q3

REPORT INFORMATION
  Report Type: Spontaneous
  Country: US (occurrence: US)
  Receive Date: 20150821
  Receipt Date: 20150821
  Transmission Date: 20151125
  Serious: No
  Sender: FDA-Public Use
  Company Number: US-ROCHE-1369309

PATIENT
  Age: 60 Year
  Sex: Female

DRUGS (1)
  1. PEGASYS [Suspect]
     Active Substance: PEGINTERFERON ALFA-2A
     Indication: CHRONIC HEPATITIS C
     Route: 058
     Dates: start: 20140202

REACTIONS (5)
  - Pyrexia [Recovered/Resolved]
  - Toothache [Not Recovered/Not Resolved]
  - Headache [Unknown]
  - Pain [Unknown]
  - Drug administration error [Unknown]

NARRATIVE: CASE EVENT DATE: 20140319
